FAERS Safety Report 8224240-9 (Version None)
Quarter: 2012Q1

REPORT INFORMATION
  Report Type: 
  Country: None (occurrence: None)
  Receive Date: 20120321
  Receipt Date: 20120313
  Transmission Date: 20120608
  Serious: Yes (Hospitalization)
  Sender: FDA-Public Use
  Company Number: IT-PURDUE-GBR-2011-0008772

PATIENT
  Sex: Male

DRUGS (9)
  1. PORTOLAC [Concomitant]
  2. OXYCODONE HYDROCHLORIDE [Suspect]
     Indication: ISCHAEMIC LIMB PAIN
     Dosage: 20 MG, DAILY
     Route: 048
     Dates: start: 20110711, end: 20110824
  3. COUMADIN [Concomitant]
  4. NORMASE [Concomitant]
  5. METOPROLOL TARTRATE [Concomitant]
  6. LANSOPRAZOLE [Concomitant]
  7. ALLOPURINOL [Concomitant]
  8. LASIX [Concomitant]
  9. LUVION                             /00252501/ [Concomitant]

REACTIONS (6)
  - VOMITING [None]
  - CONSTIPATION [None]
  - THIRST DECREASED [None]
  - OLIGURIA [None]
  - NAUSEA [None]
  - DECREASED APPETITE [None]
